FAERS Safety Report 5576754-8 (Version None)
Quarter: 2007Q4

REPORT INFORMATION
  Report Type: 
  Country: None (occurrence: None)
  Receive Date: 20071228
  Receipt Date: 20071227
  Transmission Date: 20080405
  Serious: Yes (Death)
  Sender: FDA-Public Use
  Company Number: US-ASTRAZENECA-2006UW09069

PATIENT
  Age: 566 Month
  Sex: Male

DRUGS (2)
  1. SEROQUEL [Suspect]
     Indication: SCHIZOPHRENIA
     Route: 048
     Dates: start: 20030201
  2. RISPERDAL [Suspect]
     Indication: SCHIZOPHRENIA
     Dates: start: 19990101

REACTIONS (2)
  - DEATH [None]
  - DIABETES MELLITUS [None]
